FAERS Safety Report 20561344 (Version 1)
Quarter: 2022Q1

REPORT INFORMATION
  Report Type: Spontaneous
  Country: US (occurrence: US)
  Receive Date: 20220307
  Receipt Date: 20220307
  Transmission Date: 20220424
  Serious: Yes (Hospitalization, Other)
  Sender: FDA-Public Use
  Company Number: US-AMGEN-USASP2022037336

PATIENT
  Age: 15 Year
  Sex: Male

DRUGS (5)
  1. RITUXIMAB [Suspect]
     Active Substance: RITUXIMAB
     Indication: Thrombotic microangiopathy
     Dosage: UNK
     Route: 065
  2. RITUXIMAB [Suspect]
     Active Substance: RITUXIMAB
     Indication: Off label use
  3. HUMAN IMMUNOGLOBULIN G [Suspect]
     Active Substance: HUMAN IMMUNOGLOBULIN G
     Indication: Thrombotic microangiopathy
     Dosage: UNK
     Route: 065
  4. ECULIZUMAB [Concomitant]
     Active Substance: ECULIZUMAB
     Indication: Thrombotic microangiopathy
  5. PROPOFOL [Concomitant]
     Active Substance: PROPOFOL

REACTIONS (3)
  - Posterior reversible encephalopathy syndrome [Recovered/Resolved]
  - Drug effective for unapproved indication [Unknown]
  - Off label use [Unknown]
